FAERS Safety Report 9573026 (Version 1)
Quarter: 2013Q4

REPORT INFORMATION
  Report Type: Spontaneous
  Country: US (occurrence: US)
  Receive Date: 20131001
  Receipt Date: 20131001
  Transmission Date: 20140711
  Serious: No
  Sender: FDA-Public Use
  Company Number: US-BIOGENIDEC-2013BI069517

PATIENT
  Age: 50 Year
  Sex: Female

DRUGS (6)
  1. TECFIDERA [Suspect]
     Indication: MULTIPLE SCLEROSIS
     Route: 048
     Dates: start: 20130627
  2. NORFLEX [Concomitant]
  3. BENAZEPRIL HCL [Concomitant]
  4. CARAFATE [Concomitant]
  5. ASPIRIN [Concomitant]
  6. AMITIZA [Concomitant]

REACTIONS (4)
  - Nausea [Unknown]
  - Flushing [Not Recovered/Not Resolved]
  - Dyspepsia [Unknown]
  - Dizziness [Unknown]
